FAERS Safety Report 16792229 (Version 1)
Quarter: 2019Q3

REPORT INFORMATION
  Report Type: Spontaneous
  Country: US (occurrence: US)
  Receive Date: 20190910
  Receipt Date: 20190910
  Transmission Date: 20191005
  Serious: Yes (Other)
  Sender: FDA-Public Use
  Company Number: US-ROCHE-2295986

PATIENT
  Age: 67 Year
  Sex: Male
  Weight: 131.66 kg

DRUGS (3)
  1. VALSARTAN. [Concomitant]
     Active Substance: VALSARTAN
     Indication: HYPERTENSION
     Route: 048
  2. PEGASYS [Suspect]
     Active Substance: PEGINTERFERON ALFA-2A
     Indication: HYPERTENSION
     Route: 048
     Dates: start: 201502
  3. PEGASYS [Suspect]
     Active Substance: PEGINTERFERON ALFA-2A
     Route: 065
     Dates: start: 20160620, end: 20170320

REACTIONS (1)
  - Liver injury [Recovered/Resolved]

NARRATIVE: CASE EVENT DATE: 2016
